FAERS Safety Report 19367543 (Version 3)
Quarter: 2021Q2

REPORT INFORMATION
  Report Type: Spontaneous
  Country: US (occurrence: US)
  Receive Date: 20210602
  Receipt Date: 20210608
  Transmission Date: 20210717
  Serious: Yes (Hospitalization, Other)
  Sender: FDA-Public Use
  Company Number: US-SUNOVION-2021SUN001992

PATIENT
  Age: 59 Year
  Sex: Female

DRUGS (2)
  1. APTIOM [Suspect]
     Active Substance: ESLICARBAZEPINE ACETATE
     Indication: EPILEPSY
     Dosage: 600 MG QD (200MG MORNING AND 2 TABLETS 200MG IN THE EVENING)
     Route: 048
     Dates: start: 202012
  2. ZENPEP [Concomitant]
     Active Substance: PANCRELIPASE AMYLASE\PANCRELIPASE LIPASE\PANCRELIPASE PROTEASE
     Indication: DYSPEPSIA
     Dosage: UNK(40,000 UNITS, 2 BEFORE MEALS AND 1 BEFORE SNACKS)

REACTIONS (5)
  - Seizure [Unknown]
  - Head injury [Unknown]
  - Off label use [Unknown]
  - Rib fracture [Unknown]
  - Fall [Unknown]

NARRATIVE: CASE EVENT DATE: 202012
